FAERS Safety Report 8413459-X (Version None)
Quarter: 2012Q2

REPORT INFORMATION
  Report Type: 
  Country: None (occurrence: None)
  Receive Date: 20120605
  Receipt Date: 20120601
  Transmission Date: 20120825
  Serious: Yes (Other)
  Sender: FDA-Public Use
  Company Number: BE-UCBSA-057964

PATIENT
  Age: 90 Year
  Sex: Female

DRUGS (4)
  1. KEPPRA [Suspect]
     Dates: start: 20090101
  2. ACETAMINOPHEN [Concomitant]
  3. CARDIOASPIRINE [Concomitant]
  4. KEPPRA [Suspect]
     Indication: EPILEPSY
     Dates: start: 20110101

REACTIONS (1)
  - PEMPHIGOID [None]
